FAERS Safety Report 9539310 (Version 1)
Quarter: 2013Q2

REPORT INFORMATION
  Report Type: Spontaneous
  Country: US (occurrence: None)
  Receive Date: 20130507
  Receipt Date: 20130507
  Transmission Date: 20140414
  Serious: No
  Sender: FDA-Public Use
  Company Number: PHEH2012US025117

PATIENT
  Age: 68 Year
  Sex: Female

DRUGS (9)
  1. AFINITOR (RAD) UNKNOWN [Suspect]
     Route: 048
  2. HERCEPTIN (TRASTUZUMAB) [Concomitant]
  3. ZOMETA (ZOLEDRONIC ACID) [Concomitant]
  4. EXEMESTANE (EXEMESTANE) [Concomitant]
  5. ALPRAZOLAM (ALPRAZOLAM) [Concomitant]
  6. VITAMIN D (ERGOCALIFEROL) [Concomitant]
  7. B COMPLEX (NICOTINAMIDE, PYROXINE HYDROCHLORIDE, RIBOFLAVIN, THIAMINE HYDROCHLORIDE) [Concomitant]
  8. OXYCODONE (OXYCODONE) [Concomitant]
  9. SYNTHROID (LEVOTHYROXINE SODIUM) [Concomitant]

REACTIONS (2)
  - Rash [None]
  - Stomatitis [None]
